FAERS Safety Report 5718859-4 (Version None)
Quarter: 2008Q2

REPORT INFORMATION
  Report Type: 
  Country: None (occurrence: None)
  Receive Date: 20080425
  Receipt Date: 20080418
  Transmission Date: 20081010
  Serious: Yes (Other)
  Sender: FDA-Public Use
  Company Number: FR-PFIZER INC-2008035054

PATIENT
  Age: 50 Year
  Sex: Male

DRUGS (2)
  1. ATORVASTATIN CALCIUM [Suspect]
  2. EZETIMIBE [Concomitant]

REACTIONS (3)
  - ERECTILE DYSFUNCTION [None]
  - HYPOCHOLESTEROLAEMIA [None]
  - MYALGIA [None]
